FAERS Safety Report 9678574 (Version 1)
Quarter: 2013Q4

REPORT INFORMATION
  Report Type: Report from Study
  Country: US (occurrence: US)
  Receive Date: 20131108
  Receipt Date: 20131108
  Transmission Date: 20140711
  Serious: Yes (Hospitalization)
  Sender: FDA-Public Use
  Company Number: US-ABBVIE-13P-163-1166256-00

PATIENT
  Age: 44 Year
  Sex: Male
  Weight: 56.75 kg

DRUGS (5)
  1. HUMIRA [Suspect]
     Indication: COLITIS ULCERATIVE
     Dates: start: 201305, end: 201305
  2. HUMIRA [Suspect]
     Dates: start: 2013, end: 201309
  3. NORCO [Suspect]
     Indication: PAIN
  4. ASACOL [Concomitant]
     Indication: COLITIS ULCERATIVE
  5. XANAX [Concomitant]
     Indication: STRESS

REACTIONS (6)
  - Tendon rupture [Unknown]
  - Arthralgia [Unknown]
  - Gastric disorder [Not Recovered/Not Resolved]
  - Feeling hot [Not Recovered/Not Resolved]
  - Influenza [Recovered/Resolved]
  - Rectal haemorrhage [Recovered/Resolved]
